FAERS Safety Report 18806565 (Version 4)
Quarter: 2021Q1

REPORT INFORMATION
  Report Type: Report from Study
  Country: FR (occurrence: FR)
  Receive Date: 20210129
  Receipt Date: 20210210
  Transmission Date: 20210419
  Serious: Yes (Hospitalization, Other)
  Sender: FDA-Public Use
  Company Number: FR-AUROBINDO-AUR-APL-2021-003710

PATIENT
  Age: 80 Year
  Sex: Male
  Weight: 100 kg

DRUGS (8)
  1. PARACETAMOL [Suspect]
     Active Substance: ACETAMINOPHEN
     Indication: GOUT
     Dosage: 1 GRAM (PRN) IF NEEDED (4 G MAX)
     Route: 065
  2. TRAMADOL. [Suspect]
     Active Substance: TRAMADOL
     Indication: GOUT
     Dosage: 100 MILLIGRAM, TWO TIMES A DAY
     Route: 065
  3. FUROSEMIDE. [Suspect]
     Active Substance: FUROSEMIDE
     Indication: PRODUCT USED FOR UNKNOWN INDICATION
     Dosage: 40 MILLIGRAM, ONCE A DAY
     Route: 005
  4. PREDNISONE. [Suspect]
     Active Substance: PREDNISONE
     Indication: GOUT
     Dosage: 20 MILLIGRAM, ONCE A DAY
     Route: 065
  5. ALFUZOSINE [Suspect]
     Active Substance: ALFUZOSIN HYDROCHLORIDE
     Indication: PRODUCT USED FOR UNKNOWN INDICATION
     Dosage: 10 MILLIGRAM, ONCE A DAY (EVENING)
     Route: 065
  6. HYDROXYZINE [Suspect]
     Active Substance: HYDROXYZINE HYDROCHLORIDE
     Indication: AGITATION
     Dosage: 50 MILLIGRAM, TWO TIMES A DAY
     Route: 065
  7. IPRATROPIUM [Suspect]
     Active Substance: IPRATROPIUM
     Indication: ACUTE RESPIRATORY FAILURE
     Dosage: 2 DOSAGE FORM, FOUR TIMES/DAY
     Route: 065
  8. METFORMIN [Suspect]
     Active Substance: METFORMIN HYDROCHLORIDE
     Indication: PRODUCT USED FOR UNKNOWN INDICATION
     Dosage: 500 MILLIGRAM, 3 TIMES A DAY
     Route: 065

REACTIONS (7)
  - Asthma [Unknown]
  - Cardiac failure [Unknown]
  - Acute respiratory failure [Unknown]
  - Agitation [Unknown]
  - Contraindicated product administered [Unknown]
  - Gout [Unknown]
  - Fall [Unknown]
